FAERS Safety Report 10513656 (Version 5)
Quarter: 2015Q2

REPORT INFORMATION
  Report Type: Spontaneous
  Country: JP (occurrence: JP)
  Receive Date: 20141013
  Receipt Date: 20150505
  Transmission Date: 20150821
  Serious: Yes (Hospitalization)
  Sender: FDA-Public Use
  Company Number: JP-JNJFOC-20141005630

PATIENT
  Age: 77 Year
  Sex: Female

DRUGS (1)
  1. REMICADE [Suspect]
     Active Substance: INFLIXIMAB
     Indication: PSORIASIS
     Route: 042
     Dates: start: 201012

REACTIONS (3)
  - Salivary gland neoplasm [Unknown]
  - Pituitary tumour benign [Unknown]
  - Cell marker increased [Recovering/Resolving]

NARRATIVE: CASE EVENT DATE: 201208
